FAERS Safety Report 8035677-5 (Version None)
Quarter: 2012Q1

REPORT INFORMATION
  Report Type: 
  Country: None (occurrence: None)
  Receive Date: 20120111
  Receipt Date: 20120104
  Transmission Date: 20120608
  Serious: Yes (Other)
  Sender: FDA-Public Use
  Company Number: KR-AMGEN-KORSP2011026147

PATIENT
  Age: 67 Year
  Sex: Male

DRUGS (17)
  1. NESPO [Suspect]
     Dosage: UNK
     Dates: start: 20090205
  2. NESPO [Suspect]
     Dosage: 40 MUG, QWK
     Route: 042
     Dates: start: 20090604, end: 20090910
  3. PROPRANOLOL [Concomitant]
     Dosage: 40 MG, UNK
  4. NESPO [Suspect]
     Indication: RENAL FAILURE CHRONIC
     Dosage: UNK
     Route: 058
     Dates: start: 20090307, end: 20091010
  5. VITAMIN B COMPLEX WITH C [Concomitant]
  6. FERROUS SULFATE TAB [Concomitant]
  7. EPOETIN ALFA [Suspect]
     Dosage: 6000 IU, QWK
     Route: 058
     Dates: start: 20091020, end: 20110406
  8. CANDESARTAN CILEXETIL [Concomitant]
     Dosage: 16 MG, UNK
  9. NESPO [Suspect]
     Dosage: 30 MUG, QWK
     Route: 042
     Dates: start: 20090903, end: 20091010
  10. EPOETIN ALFA [Suspect]
     Indication: RENAL FAILURE CHRONIC
     Dosage: 6000 IU, QWK
     Route: 058
     Dates: start: 20090205, end: 20090603
  11. ASPIRIN [Concomitant]
  12. HYDRALAZINE HCL [Concomitant]
     Dosage: 25 MG, UNK
  13. NIFEDIPINE [Concomitant]
     Dosage: 60 MG, UNK
  14. CALCIUM POLYSTYRENE SULFONATE [Concomitant]
     Dosage: 5 G, TID
  15. SEVELAMER HYDROCHLORIDE [Concomitant]
     Dosage: 800 MG, UNK
  16. GLICLAZIDE [Concomitant]
     Dosage: 30 MG, UNK
  17. REPAGLINIDE [Concomitant]
     Dosage: 1 MG, UNK

REACTIONS (2)
  - ANTI-ERYTHROPOIETIN ANTIBODY POSITIVE [None]
  - APLASIA PURE RED CELL [None]
